FAERS Safety Report 8957043 (Version 2)
Quarter: 2012Q4

REPORT INFORMATION
  Report Type: 
  Country: US (occurrence: US)
  Receive Date: 20121211
  Receipt Date: 20121230
  Transmission Date: 20130627
  Serious: No
  Sender: FDA-Public Use
  Company Number: US-TEVA-374960USA

PATIENT
  Sex: Female
  Weight: 62.65 kg

DRUGS (5)
  1. PROAIR HFA [Suspect]
     Dosage: 2 puffs bid/prn
     Route: 055
     Dates: end: 20121206
  2. DIAZEPAM [Concomitant]
     Route: 048
  3. ELAVIL [Concomitant]
     Route: 048
  4. TIAZAC [Concomitant]
     Route: 048
  5. MECLIZINE [Concomitant]
     Route: 048

REACTIONS (3)
  - Pollakiuria [Unknown]
  - Urinary incontinence [Unknown]
  - Enuresis [Unknown]
